FAERS Safety Report 10376030 (Version 1)
Quarter: 2014Q3

REPORT INFORMATION
  Report Type: Spontaneous
  Country: GB (occurrence: GB)
  Receive Date: 20140811
  Receipt Date: 20140811
  Transmission Date: 20150326
  Serious: Yes (Other)
  Sender: FDA-Public Use
  Company Number: GB-TEVA-499062ISR

PATIENT
  Age: 82 Year
  Sex: Female
  Weight: 75.7 kg

DRUGS (15)
  1. ATORVASTATIN [Concomitant]
     Active Substance: ATORVASTATIN
     Dates: start: 20140417
  2. GLUCAGON. [Concomitant]
     Active Substance: GLUCAGON
     Dates: start: 20140602, end: 20140630
  3. LOPERAMIDE [Concomitant]
     Active Substance: LOPERAMIDE
     Dates: start: 20140602, end: 20140609
  4. OXYCODONE HYDROCHLORIDE. [Concomitant]
     Active Substance: OXYCODONE HYDROCHLORIDE
     Dates: start: 20140602, end: 20140630
  5. PARACETAMOL [Concomitant]
     Active Substance: ACETAMINOPHEN
     Dates: start: 20140718
  6. HUMALOG [Concomitant]
     Active Substance: INSULIN LISPRO
     Dates: start: 20140602, end: 20140630
  7. HUMALOG [Concomitant]
     Active Substance: INSULIN LISPRO
     Dates: start: 20140402, end: 20140430
  8. QUININE [Concomitant]
     Active Substance: QUININE
     Dates: start: 20140602, end: 20140630
  9. AMITRIPTYLINE [Suspect]
     Active Substance: AMITRIPTYLINE
     Indication: SCIATICA
  10. AMLODIPINE [Concomitant]
     Active Substance: AMLODIPINE BESYLATE
     Dates: start: 20140417
  11. ASPIRIN. [Concomitant]
     Active Substance: ASPIRIN
     Dates: start: 20140417
  12. GLUCAGON. [Concomitant]
     Active Substance: GLUCAGON
     Dates: start: 20140402, end: 20140430
  13. LISINOPRIL. [Concomitant]
     Active Substance: LISINOPRIL
     Dates: start: 20140417
  14. OXYCODONE HYDROCHLORIDE. [Concomitant]
     Active Substance: OXYCODONE HYDROCHLORIDE
     Dates: start: 20140402, end: 20140430
  15. QUININE [Concomitant]
     Active Substance: QUININE
     Dates: start: 20140402, end: 20140430

REACTIONS (1)
  - Hypoglycaemia [Recovering/Resolving]

NARRATIVE: CASE EVENT DATE: 20140719
